FAERS Safety Report 4683567-8 (Version None)
Quarter: 2005Q2

REPORT INFORMATION
  Report Type: 
  Country: None (occurrence: None)
  Receive Date: 20050606
  Receipt Date: 20050606
  Transmission Date: 20051028
  Serious: Yes (Other)
  Sender: FDA-Public Use
  Company Number: None

PATIENT
  Sex: Female

DRUGS (8)
  1. FENTANYL [Suspect]
     Indication: PAIN
     Dosage: 100 MCG/HR Q72 H TRANSDERMAL
     Route: 062
     Dates: start: 20050519, end: 20050525
  2. FENTANYL [Suspect]
     Indication: ARTHRITIS
     Dosage: 50 MCG/HR Q72 H TRANSDERMAL
     Route: 062
     Dates: start: 20050519, end: 20050525
  3. ACTIG [Concomitant]
  4. MS CONTIN [Concomitant]
  5. LIDOCAINE [Concomitant]
  6. ZONEGRAN [Concomitant]
  7. BACLOFEN [Concomitant]
  8. METHOTREXATE [Concomitant]

REACTIONS (2)
  - PHARMACEUTICAL PRODUCT COMPLAINT [None]
  - THERAPEUTIC RESPONSE UNEXPECTED WITH DRUG SUBSTITUTION [None]
